FAERS Safety Report 24816359 (Version 7)
Quarter: 2025Q3

REPORT INFORMATION
  Report Type: Report from Study
  Country: US (occurrence: US)
  Receive Date: 20250107
  Receipt Date: 20250901
  Transmission Date: 20251021
  Serious: No
  Sender: SANDOZ
  Company Number: US-SANDOZ-SDZ2024US060229

PATIENT
  Age: 13 Year
  Sex: Male

DRUGS (6)
  1. OMNITROPE [Suspect]
     Active Substance: SOMATROPIN
     Dosage: 2 MG, QD, PEN
     Route: 058
  2. OMNITROPE [Suspect]
     Active Substance: SOMATROPIN
     Dosage: 2 MG, QD, PEN
     Route: 058
  3. OMNITROPE [Suspect]
     Active Substance: SOMATROPIN
     Route: 065
  4. OMNITROPE [Suspect]
     Active Substance: SOMATROPIN
     Route: 065
  5. OMNITROPE [Suspect]
     Active Substance: SOMATROPIN
     Indication: Short stature
     Dosage: 2 MG, QD, CARTRIDGE
     Route: 058
     Dates: start: 20240618
  6. OMNITROPE [Suspect]
     Active Substance: SOMATROPIN
     Indication: Short stature
     Dosage: 2 MG, QD, CARTRIDGE
     Route: 058
     Dates: start: 20240618

REACTIONS (9)
  - Injection site haemorrhage [Not Recovered/Not Resolved]
  - Wrong technique in device usage process [Unknown]
  - Incorrect dose administered by device [Unknown]
  - Poor quality device used [Unknown]
  - Device use issue [Unknown]
  - Device leakage [Unknown]
  - Device mechanical issue [Unknown]
  - Device breakage [Unknown]
  - Device physical property issue [Unknown]

NARRATIVE: CASE EVENT DATE: 20240709
